FAERS Safety Report 6771931-2 (Version None)
Quarter: 2010Q2

REPORT INFORMATION
  Report Type: 
  Country: None (occurrence: None)
  Receive Date: 20100616
  Receipt Date: 20100604
  Transmission Date: 20101027
  Serious: Yes (Other)
  Sender: FDA-Public Use
  Company Number: JP-SANOFI-AVENTIS-2010SA032178

PATIENT
  Age: 75 Year
  Sex: Female

DRUGS (12)
  1. OXALIPLATIN [Suspect]
     Indication: COLON CANCER METASTATIC
     Route: 041
     Dates: start: 20091112, end: 20091112
  2. OXALIPLATIN [Suspect]
     Route: 041
     Dates: start: 20100219, end: 20100219
  3. XELODA [Suspect]
     Indication: LARGE INTESTINE CARCINOMA
     Route: 048
     Dates: start: 20091112, end: 20100423
  4. AVASTIN [Suspect]
     Indication: COLON CANCER METASTATIC
     Route: 041
     Dates: start: 20091204, end: 20091204
  5. AVASTIN [Suspect]
     Route: 041
  6. PARIET [Concomitant]
     Dates: start: 20091030
  7. MAGLAX [Concomitant]
  8. CYANOCOBALAMIN/PYRIDOXINE HYDROCHLORIDE/THIAMINE DISULFIDE [Concomitant]
     Dates: start: 20091112, end: 20100423
  9. PURSENNID /SCH/ [Concomitant]
     Dates: start: 20091109
  10. RAMELTEON [Concomitant]
     Dates: start: 20091112
  11. DEXAMETHASONE SODIUM PHOSPHATE [Concomitant]
     Dates: start: 20091112
  12. FOIPAN [Concomitant]
     Dates: start: 20091208

REACTIONS (2)
  - BONE MARROW FAILURE [None]
  - KERATITIS [None]
